FAERS Safety Report 8425004-3 (Version None)
Quarter: 2012Q2

REPORT INFORMATION
  Report Type: 
  Country: None (occurrence: None)
  Receive Date: 20120605
  Receipt Date: 20120605
  Transmission Date: 20120825
  Serious: Yes (Other)
  Sender: FDA-Public Use
  Company Number: None

PATIENT
  Age: 52 Year
  Sex: Male
  Weight: 77.1115 kg

DRUGS (1)
  1. ALBENZA [Suspect]
     Indication: INFECTION PARASITIC
     Dosage: 200MG TABS 2 TIMES A DAY PO
     Route: 048

REACTIONS (2)
  - HALLUCINATION [None]
  - UNEVALUABLE EVENT [None]
